FAERS Safety Report 24625956 (Version 1)
Quarter: 2024Q4

REPORT INFORMATION
  Report Type: Spontaneous
  Country: US (occurrence: US)
  Receive Date: 20241115
  Receipt Date: 20241115
  Transmission Date: 20250115
  Serious: No
  Sender: ANI
  Company Number: US-ANIPHARMA-2024-US-056194

PATIENT
  Age: 90 Year
  Sex: Male
  Weight: 90.72 kg

DRUGS (5)
  1. FLECAINIDE ACETATE [Suspect]
     Active Substance: FLECAINIDE ACETATE
     Indication: Atrial fibrillation
     Dosage: 1 TABLET TWICE DAILY / 3 OR 4 100 MG TABLETS AT ONCE
     Route: 048
     Dates: start: 20081018
  2. OMEPRAZOLE [Concomitant]
     Active Substance: OMEPRAZOLE
  3. DILTIAZEM [Concomitant]
     Active Substance: DILTIAZEM
  4. CLONAZEPAM [Concomitant]
     Active Substance: CLONAZEPAM
     Dosage: PRN
  5. Regulate supplement [Concomitant]

REACTIONS (4)
  - Intentional product misuse [Recovered/Resolved]
  - Intentional product use issue [Recovered/Resolved]
  - Drug ineffective [Not Recovered/Not Resolved]
  - Fatigue [Not Recovered/Not Resolved]

NARRATIVE: CASE EVENT DATE: 20231001
